FAERS Safety Report 6050333-0 (Version None)
Quarter: 2009Q1

REPORT INFORMATION
  Report Type: 
  Country: None (occurrence: None)
  Receive Date: 20090126
  Receipt Date: 20090115
  Transmission Date: 20090719
  Serious: Yes (Hospitalization)
  Sender: FDA-Public Use
  Company Number: JP-AMGEN-US329975

PATIENT
  Sex: Female
  Weight: 55 kg

DRUGS (11)
  1. ENBREL [Suspect]
     Indication: RHEUMATOID ARTHRITIS
     Route: 058
     Dates: start: 20071205, end: 20080404
  2. PREDNISOLONE [Suspect]
     Indication: RHEUMATOID ARTHRITIS
     Route: 048
  3. LOXONIN [Concomitant]
     Indication: RHEUMATOID ARTHRITIS
     Route: 048
  4. ONE-ALPHA [Concomitant]
     Indication: OSTEOPOROSIS
     Route: 048
  5. ANPLAG [Concomitant]
     Indication: ARTERIOSCLEROSIS OBLITERANS
     Route: 048
  6. ISCOTIN [Concomitant]
     Indication: PROPHYLAXIS
     Route: 048
  7. BONALON [Concomitant]
     Indication: OSTEOPOROSIS
     Route: 048
  8. OLOPATADINE HYDROCHLORIDE [Concomitant]
     Indication: HYPERTENSION
     Route: 048
  9. NIVADIL [Concomitant]
     Indication: HYPERTENSION
     Route: 048
  10. ALDACTONE [Concomitant]
     Indication: HYPERTENSION
     Route: 048
  11. FAMOTIDINE [Concomitant]
     Indication: PROPHYLAXIS
     Route: 048

REACTIONS (2)
  - ENTEROVESICAL FISTULA [None]
  - URINARY TRACT INFECTION [None]
